FAERS Safety Report 13801441 (Version 1)
Quarter: 2017Q3

REPORT INFORMATION
  Report Type: Spontaneous
  Country: KR (occurrence: KR)
  Receive Date: 20170727
  Receipt Date: 20170727
  Transmission Date: 20171127
  Serious: Yes (Hospitalization, Other)
  Sender: FDA-Public Use
  Company Number: KR-BAYER-2017-137724

PATIENT
  Age: 63 Year
  Sex: Female

DRUGS (1)
  1. SORAFENIB (RAF KINASE INHIBITOR) [Suspect]
     Active Substance: SORAFENIB
     Indication: HEPATOCELLULAR CARCINOMA
     Dosage: UNK

REACTIONS (7)
  - Gastric ulcer [None]
  - Cough [None]
  - Dyspnoea [None]
  - Hepatocellular carcinoma [None]
  - Radiation pneumonitis [None]
  - Abdominal distension [None]
  - Asthenia [None]
